FAERS Safety Report 6366497-5 (Version None)
Quarter: 2009Q3

REPORT INFORMATION
  Report Type: 
  Country: None (occurrence: None)
  Receive Date: 20090915
  Receipt Date: 20090831
  Transmission Date: 20100115
  Serious: Yes (Hospitalization)
  Sender: FDA-Public Use
  Company Number: 2009BI026781

PATIENT
  Age: 62 Year
  Sex: Male

DRUGS (8)
  1. ZEVALIN [Suspect]
     Indication: B-CELL LYMPHOMA
     Dosage: 31.1 MCI;1X;IV
     Route: 042
     Dates: start: 20080807, end: 20080807
  2. ZEVALIN [Suspect]
     Indication: STEM CELL TRANSPLANT
     Dosage: 31.1 MCI;1X;IV
     Route: 042
     Dates: start: 20080807, end: 20080807
  3. MABTHERA [Concomitant]
  4. CARMUSTINE [Concomitant]
  5. CYTARABINE [Concomitant]
  6. ETOPOSIDE [Concomitant]
  7. MELPHALAN [Concomitant]
  8. PREV MEDS [Concomitant]

REACTIONS (1)
  - HERPES ZOSTER [None]
